FAERS Safety Report 9052918 (Version 2)
Quarter: 2013Q1

REPORT INFORMATION
  Report Type: Spontaneous
  Country: AT (occurrence: AT)
  Receive Date: 20130207
  Receipt Date: 20130327
  Transmission Date: 20140127
  Serious: Yes (Life-Threatening, Hospitalization)
  Sender: FDA-Public Use
  Company Number: PHHY2013AT010035

PATIENT
  Age: 62 Year
  Sex: Male
  Weight: 160 kg

DRUGS (7)
  1. SERTRALIN [Suspect]
     Indication: DEPRESSION
     Dosage: 50 MG, UNK
     Route: 048
     Dates: end: 20130202
  2. IVADAL [Interacting]
     Indication: SLEEP DISORDER
     Dosage: 10 MG, UNK
     Route: 048
  3. IVADAL [Interacting]
     Dosage: 3 DF, UNK
     Route: 048
     Dates: start: 20130130
  4. IVADAL [Interacting]
     Dosage: 2 DF, UNK
     Route: 048
  5. IVADAL [Interacting]
     Dosage: 0.5 UNK, UNK
     Route: 048
  6. QUETIALAN [Concomitant]
  7. LOSARTAN/HCT [Concomitant]
     Dosage: 1 DF, QD

REACTIONS (18)
  - Circulatory collapse [Recovered/Resolved]
  - Hypotension [Recovered/Resolved]
  - Hyperhidrosis [Recovered/Resolved]
  - Pyelonephritis [Unknown]
  - Anuria [Recovered/Resolved]
  - Blood creatinine increased [Unknown]
  - Blood urine present [Unknown]
  - Polyuria [Recovered/Resolved]
  - Urinary tract infection [Unknown]
  - Heart rate increased [Recovered/Resolved]
  - Gastroenteritis [Recovered/Resolved]
  - Hypopnoea [Recovered/Resolved]
  - Dry mouth [Recovered/Resolved]
  - Medication error [Unknown]
  - Drug interaction [Recovered/Resolved]
  - Dysstasia [Unknown]
  - Restlessness [Unknown]
  - Agitation [Unknown]
